FAERS Safety Report 14471363 (Version 3)
Quarter: 2018Q3

REPORT INFORMATION
  Report Type: Report from Study
  Country: CA (occurrence: CA)
  Receive Date: 20180131
  Receipt Date: 20180926
  Transmission Date: 20181010
  Serious: Yes (Other)
  Sender: FDA-Public Use
  Company Number: CA-BRISTOL-MYERS SQUIBB COMPANY-BMS-2017-105611

PATIENT
  Age: 55 Year
  Sex: Female

DRUGS (3)
  1. MULTIVITAMIN                       /00097801/ [Concomitant]
     Active Substance: VITAMINS
     Indication: PRODUCT USED FOR UNKNOWN INDICATION
     Route: 065
  2. ABATACEPT [Suspect]
     Active Substance: ABATACEPT
     Indication: PRODUCT USED FOR UNKNOWN INDICATION
     Dosage: 125 MG, UNK
     Route: 065
     Dates: start: 201701
  3. ABATACEPT [Suspect]
     Active Substance: ABATACEPT
     Indication: RHEUMATOID ARTHRITIS
     Dosage: 125 MG, QWK
     Route: 058
     Dates: start: 20161124

REACTIONS (7)
  - Infected bite [Recovered/Resolved]
  - Abdominal distension [Unknown]
  - Skin ulcer [Unknown]
  - Malaise [Unknown]
  - Chronic sinusitis [Not Recovered/Not Resolved]
  - Sluggishness [Unknown]
  - Alopecia [Unknown]

NARRATIVE: CASE EVENT DATE: 20171021
